FAERS Safety Report 17250157 (Version 5)
Quarter: 2020Q2

REPORT INFORMATION
  Report Type: Report from Study
  Country: PL (occurrence: PL)
  Receive Date: 20200109
  Receipt Date: 20200615
  Transmission Date: 20200713
  Serious: Yes (Death, Hospitalization)
  Sender: FDA-Public Use
  Company Number: PL-ROCHE-2514574

PATIENT
  Age: 50 Year
  Sex: Male
  Weight: 78 kg

DRUGS (66)
  1. RO6874281 (FAP IL2V MAB) [Suspect]
     Active Substance: SIMLUKAFUSP ALFA
     Indication: OESOPHAGEAL SQUAMOUS CELL CARCINOMA
     Dosage: DATE OF MOST RECENT DOSE OF RO6874281 PRIOR TO AE ONSET: 27/NOV/2019 (TIME:12.50)
     Route: 042
     Dates: start: 20190109
  2. KETONAL [KETOPROFEN] [Concomitant]
     Active Substance: KETOPROFEN
     Route: 065
     Dates: start: 20190130, end: 20190130
  3. KETONAL [KETOPROFEN] [Concomitant]
     Active Substance: KETOPROFEN
     Route: 065
     Dates: start: 20190313, end: 20190313
  4. KETONAL [KETOPROFEN] [Concomitant]
     Active Substance: KETOPROFEN
     Route: 065
     Dates: start: 20190424, end: 20190424
  5. KETONAL [KETOPROFEN] [Concomitant]
     Active Substance: KETOPROFEN
     Route: 065
     Dates: start: 20190605, end: 20190605
  6. PYRALGINUM [Concomitant]
     Active Substance: METAMIZOLE SODIUM
     Route: 065
     Dates: start: 20190403, end: 20190403
  7. PYRALGINUM [Concomitant]
     Active Substance: METAMIZOLE SODIUM
     Route: 065
     Dates: start: 20190424, end: 20190424
  8. PYRALGINUM [Concomitant]
     Active Substance: METAMIZOLE SODIUM
     Route: 065
     Dates: start: 20190717, end: 20190717
  9. ATROVENT [Concomitant]
     Active Substance: IPRATROPIUM BROMIDE
     Indication: CHRONIC OBSTRUCTIVE PULMONARY DISEASE
     Route: 065
     Dates: start: 20190904
  10. TRAMAL [Concomitant]
     Active Substance: TRAMADOL
     Indication: MUSCULOSKELETAL PAIN
     Route: 065
     Dates: start: 20190429, end: 20191204
  11. COMBOTEROL [Concomitant]
     Indication: CHRONIC OBSTRUCTIVE PULMONARY DISEASE
     Route: 065
     Dates: start: 20190904
  12. ATEZOLIZUMAB. [Suspect]
     Active Substance: ATEZOLIZUMAB
     Indication: OESOPHAGEAL SQUAMOUS CELL CARCINOMA
     Dosage: DATE OF MOST RECENT DOSE OF ATEZOLIZUMAB PRIOR TO AE ONSET: 27/NOV/2019 (TIME;11.20)
     Route: 041
     Dates: start: 20190109
  13. CONTROLOC [Concomitant]
     Active Substance: PANTOPRAZOLE SODIUM
     Indication: PANCREATITIS CHRONIC
     Route: 065
     Dates: start: 1995
  14. PARACETAMOL [Concomitant]
     Active Substance: ACETAMINOPHEN
     Route: 065
     Dates: start: 20190515, end: 20190515
  15. KETONAL [KETOPROFEN] [Concomitant]
     Active Substance: KETOPROFEN
     Route: 065
     Dates: start: 20190403, end: 20190403
  16. KETONAL [KETOPROFEN] [Concomitant]
     Active Substance: KETOPROFEN
     Route: 065
     Dates: start: 20190515, end: 20190515
  17. KETONAL [KETOPROFEN] [Concomitant]
     Active Substance: KETOPROFEN
     Route: 065
     Dates: start: 20191106, end: 20191106
  18. KETONAL [KETOPROFEN] [Concomitant]
     Active Substance: KETOPROFEN
     Route: 065
     Dates: start: 20191127, end: 20191127
  19. PYRALGINUM [Concomitant]
     Active Substance: METAMIZOLE SODIUM
     Route: 065
     Dates: start: 20190109, end: 20190109
  20. PYRALGINUM [Concomitant]
     Active Substance: METAMIZOLE SODIUM
     Route: 065
     Dates: start: 20190626, end: 20190626
  21. PYRALGINUM [Concomitant]
     Active Substance: METAMIZOLE SODIUM
     Route: 065
     Dates: start: 20190828, end: 20190828
  22. MIFLONIDE [Concomitant]
     Active Substance: BUDESONIDE
     Indication: BRONCHITIS
     Route: 065
     Dates: start: 20190530
  23. THEOPHYLLINUM [Concomitant]
     Indication: CHRONIC OBSTRUCTIVE PULMONARY DISEASE
     Route: 065
     Dates: start: 20190904
  24. PARACETAMOL [Concomitant]
     Active Substance: ACETAMINOPHEN
     Route: 065
     Dates: start: 20190220, end: 20190220
  25. PARACETAMOL [Concomitant]
     Active Substance: ACETAMINOPHEN
     Route: 065
     Dates: start: 20190626, end: 20190626
  26. PARACETAMOL [Concomitant]
     Active Substance: ACETAMINOPHEN
     Route: 065
     Dates: start: 20190807, end: 20190807
  27. KETONAL [KETOPROFEN] [Concomitant]
     Active Substance: KETOPROFEN
     Route: 065
     Dates: start: 20190807, end: 20190807
  28. KETONAL [KETOPROFEN] [Concomitant]
     Active Substance: KETOPROFEN
     Route: 065
     Dates: start: 20190918, end: 20190918
  29. PYRALGINUM [Concomitant]
     Active Substance: METAMIZOLE SODIUM
     Route: 065
     Dates: start: 20190130, end: 20190130
  30. PYRALGINUM [Concomitant]
     Active Substance: METAMIZOLE SODIUM
     Route: 065
     Dates: start: 20190807, end: 20190807
  31. PYRALGINUM [Concomitant]
     Active Substance: METAMIZOLE SODIUM
     Route: 065
     Dates: start: 20191009, end: 20191009
  32. PYRALGINUM [Concomitant]
     Active Substance: METAMIZOLE SODIUM
     Route: 065
     Dates: start: 20191106, end: 20191106
  33. PYRALGINUM [Concomitant]
     Active Substance: METAMIZOLE SODIUM
     Route: 065
     Dates: start: 20191127, end: 20191127
  34. SALBUTAMOL [Concomitant]
     Active Substance: ALBUTEROL
     Indication: CHRONIC OBSTRUCTIVE PULMONARY DISEASE
     Route: 065
     Dates: start: 20191002
  35. PARACETAMOL [Concomitant]
     Active Substance: ACETAMINOPHEN
     Route: 065
     Dates: start: 20191009, end: 20191009
  36. KETONAL [KETOPROFEN] [Concomitant]
     Active Substance: KETOPROFEN
     Route: 065
     Dates: start: 20191204, end: 20191217
  37. PYRALGINUM [Concomitant]
     Active Substance: METAMIZOLE SODIUM
     Route: 065
     Dates: start: 20190918, end: 20190918
  38. FEROPLEX [Concomitant]
     Indication: ANAEMIA
     Route: 065
     Dates: start: 20190829
  39. PARACETAMOL [Concomitant]
     Active Substance: ACETAMINOPHEN
     Route: 065
     Dates: start: 20190109, end: 20190109
  40. PARACETAMOL [Concomitant]
     Active Substance: ACETAMINOPHEN
     Route: 065
     Dates: start: 20190717, end: 20190717
  41. PARACETAMOL [Concomitant]
     Active Substance: ACETAMINOPHEN
     Route: 065
     Dates: start: 20190828, end: 20190828
  42. PARACETAMOL [Concomitant]
     Active Substance: ACETAMINOPHEN
     Route: 065
     Dates: start: 20191106, end: 20191106
  43. KETONAL [KETOPROFEN] [Concomitant]
     Active Substance: KETOPROFEN
     Route: 065
     Dates: start: 20190220, end: 20190220
  44. PYRALGINUM [Concomitant]
     Active Substance: METAMIZOLE SODIUM
     Route: 065
     Dates: start: 20190313, end: 20190313
  45. PYRALGINUM [Concomitant]
     Active Substance: METAMIZOLE SODIUM
     Route: 065
     Dates: start: 20190605, end: 20190605
  46. KREON [Concomitant]
     Active Substance: PANCRELIPASE
     Indication: PANCREATITIS CHRONIC
     Route: 065
     Dates: start: 1995
  47. HUMALOG [Concomitant]
     Active Substance: INSULIN LISPRO
     Indication: DIABETES MELLITUS
     Route: 065
     Dates: start: 1995
  48. PARACETAMOL [Concomitant]
     Active Substance: ACETAMINOPHEN
     Route: 065
     Dates: start: 20190313, end: 20190313
  49. PARACETAMOL [Concomitant]
     Active Substance: ACETAMINOPHEN
     Route: 065
     Dates: start: 20190403, end: 20190403
  50. PARACETAMOL [Concomitant]
     Active Substance: ACETAMINOPHEN
     Route: 065
     Dates: start: 20190605, end: 20190605
  51. KETONAL [KETOPROFEN] [Concomitant]
     Active Substance: KETOPROFEN
     Indication: MUSCULOSKELETAL PAIN
     Route: 065
     Dates: start: 20190109, end: 20190109
  52. PYRALGINUM [Concomitant]
     Active Substance: METAMIZOLE SODIUM
     Route: 065
     Dates: start: 20190220, end: 20190220
  53. EUPHYLIN [Concomitant]
     Active Substance: AMINOPHYLLINE
     Indication: CHRONIC OBSTRUCTIVE PULMONARY DISEASE
     Route: 065
     Dates: start: 20190904
  54. HYDROXYZINUM [HYDROXYZINE] [Concomitant]
     Indication: INSOMNIA
     Route: 065
     Dates: start: 20190424
  55. PARACETAMOL [Concomitant]
     Active Substance: ACETAMINOPHEN
     Route: 065
     Dates: start: 20190918, end: 20190918
  56. PARACETAMOL [Concomitant]
     Active Substance: ACETAMINOPHEN
     Route: 065
     Dates: start: 20191127, end: 20191127
  57. KETONAL [KETOPROFEN] [Concomitant]
     Active Substance: KETOPROFEN
     Route: 065
     Dates: start: 20191009, end: 20191009
  58. OXYCONTIN [Concomitant]
     Active Substance: OXYCODONE HYDROCHLORIDE
     Indication: MUSCULOSKELETAL PAIN
     Route: 065
     Dates: start: 20191218
  59. TIOTROPIUM [Concomitant]
     Active Substance: TIOTROPIUM
     Indication: CHRONIC OBSTRUCTIVE PULMONARY DISEASE
     Route: 065
     Dates: start: 20191002
  60. PARACETAMOL [Concomitant]
     Active Substance: ACETAMINOPHEN
     Route: 065
     Dates: start: 20190130, end: 20190130
  61. PARACETAMOL [Concomitant]
     Active Substance: ACETAMINOPHEN
     Route: 065
     Dates: start: 20190424, end: 20190424
  62. KETONAL [KETOPROFEN] [Concomitant]
     Active Substance: KETOPROFEN
     Route: 065
     Dates: start: 20190626, end: 20190626
  63. KETONAL [KETOPROFEN] [Concomitant]
     Active Substance: KETOPROFEN
     Route: 065
     Dates: start: 20190717, end: 20190717
  64. KETONAL [KETOPROFEN] [Concomitant]
     Active Substance: KETOPROFEN
     Route: 065
     Dates: start: 20190828, end: 20190828
  65. PYRALGINUM [Concomitant]
     Active Substance: METAMIZOLE SODIUM
     Route: 065
     Dates: start: 20190515, end: 20190515
  66. IBUPROFENUM [Concomitant]
     Active Substance: IBUPROFEN
     Indication: MUSCULOSKELETAL PAIN
     Route: 065
     Dates: start: 20191204, end: 20191217

REACTIONS (1)
  - Renal failure [Fatal]

NARRATIVE: CASE EVENT DATE: 20200101
